FAERS Safety Report 14326810 (Version 1)
Quarter: 2017Q4

REPORT INFORMATION
  Report Type: Spontaneous
  Country: US (occurrence: US)
  Receive Date: 20171227
  Receipt Date: 20171227
  Transmission Date: 20180321
  Serious: Yes (Hospitalization, Disabling)
  Sender: FDA-Public Use
  Company Number: US-BTG INTERNATIONAL LTD-2017BTG01449

PATIENT
  Age: 2 Year
  Sex: Female

DRUGS (3)
  1. CROFAB [Suspect]
     Active Substance: CROTALIDAE POLYVALENT IMMUNE FAB (OVINE)
     Indication: SNAKE BITE
     Dosage: 6 VIALS, UNK
     Route: 065
  2. CROFAB [Suspect]
     Active Substance: CROTALIDAE POLYVALENT IMMUNE FAB (OVINE)
     Dosage: 12 VIALS, UNK
     Route: 065
  3. CROFAB [Suspect]
     Active Substance: CROTALIDAE POLYVALENT IMMUNE FAB (OVINE)
     Dosage: 18 VIALS, UNK
     Route: 065

REACTIONS (5)
  - Blood creatine phosphokinase increased [Unknown]
  - Oedema peripheral [Unknown]
  - Immobile [Unknown]
  - Rash [Recovered/Resolved]
  - Fibrin degradation products increased [Unknown]

NARRATIVE: CASE EVENT DATE: 201604
